FAERS Safety Report 5050144-9 (Version None)
Quarter: 2006Q3

REPORT INFORMATION
  Report Type: 
  Country: None (occurrence: None)
  Receive Date: 20060706
  Receipt Date: 20060623
  Transmission Date: 20061208
  Serious: Yes (Hospitalization, Other)
  Sender: FDA-Public Use
  Company Number: 2006080041

PATIENT
  Age: 59 Year
  Sex: Female
  Weight: 81.6475 kg

DRUGS (1)
  1. CELEBREX [Suspect]
     Indication: OSTEOARTHRITIS
     Dosage: 200 MG (200 MG, 1 IN 1 D),
     Dates: start: 19990101

REACTIONS (4)
  - CORONARY ARTERY BYPASS [None]
  - DEPRESSION [None]
  - HEART VALVE REPLACEMENT [None]
  - MYOCARDIAL INFARCTION [None]
